FAERS Safety Report 5696585-8 (Version None)
Quarter: 2008Q2

REPORT INFORMATION
  Report Type: 
  Country: None (occurrence: None)
  Receive Date: 20080404
  Receipt Date: 20080404
  Transmission Date: 20081010
  Serious: No
  Sender: FDA-Public Use
  Company Number: None

PATIENT
  Age: 49 Year
  Sex: Male

DRUGS (1)
  1. DAPSONE [Suspect]
     Indication: CD4 LYMPHOCYTES DECREASED
     Dosage: 100MG  EVERY DAY PO
     Route: 048
     Dates: start: 20080128

REACTIONS (2)
  - CONSTIPATION [None]
  - HAEMOLYTIC ANAEMIA [None]
